FAERS Safety Report 9719607 (Version 2)
Quarter: 2014Q1

REPORT INFORMATION
  Report Type: Spontaneous
  Country: US (occurrence: US)
  Receive Date: 20131128
  Receipt Date: 20140123
  Transmission Date: 20141002
  Serious: Yes (Hospitalization)
  Sender: FDA-Public Use
  Company Number: US-BIOGENIDEC-2013BI113580

PATIENT
  Age: 49 Year
  Sex: Female
  Weight: 97 kg

DRUGS (3)
  1. AVONEX [Suspect]
     Indication: MULTIPLE SCLEROSIS
     Route: 030
     Dates: start: 20100910
  2. AVONEX [Suspect]
     Indication: MULTIPLE SCLEROSIS
     Route: 030
     Dates: start: 20130831
  3. CELEXA [Concomitant]
     Indication: MOOD ALTERED
     Route: 048

REACTIONS (5)
  - Depression [Recovered/Resolved]
  - Suicidal ideation [Recovered/Resolved]
  - Incorrect route of drug administration [Recovered/Resolved]
  - Weight increased [Recovered/Resolved]
  - Influenza like illness [Recovered/Resolved]
